FAERS Safety Report 6662569-6 (Version None)
Quarter: 2010Q1

REPORT INFORMATION
  Report Type: 
  Country: None (occurrence: None)
  Receive Date: 20100329
  Receipt Date: 20100315
  Transmission Date: 20100710
  Serious: Yes (Other)
  Sender: FDA-Public Use
  Company Number: 230006M10CHE

PATIENT
  Age: 61 Year
  Sex: Male

DRUGS (9)
  1. REBIF [Suspect]
  2. SINTROM [Concomitant]
  3. ATACAND [Concomitant]
  4. EZETIMIBE [Concomitant]
  5. SELIPRAN (PRAVASTATIN SODIUM) [Concomitant]
  6. LEXOTANIL (BROMAZEPAM) [Concomitant]
  7. AULIN (NIMESULIDE) [Concomitant]
  8. ACETAMINOPHEN [Concomitant]
  9. OMEPRAZOLE [Concomitant]

REACTIONS (1)
  - DIABETES MELLITUS [None]
